FAERS Safety Report 8846216 (Version 2)
Quarter: 2012Q4

REPORT INFORMATION
  Report Type: 
  Country: US (occurrence: US)
  Receive Date: 20121017
  Receipt Date: 20121112
  Transmission Date: 20130627
  Serious: Yes (Other)
  Sender: FDA-Public Use
  Company Number: US-JNJFOC-20121006071

PATIENT
  Age: 43 Year
  Sex: Female

DRUGS (6)
  1. REMICADE [Suspect]
     Indication: RHEUMATOID ARTHRITIS
     Route: 042
     Dates: start: 20110206
  2. PRISTIQ [Concomitant]
     Indication: DEPRESSION
     Route: 065
  3. AMBIEN [Concomitant]
     Indication: INSOMNIA
     Route: 065
  4. ALL OTHER THERAPEUTIC PRODUCTS [Concomitant]
     Indication: ATTENTION DEFICIT/HYPERACTIVITY DISORDER
     Route: 065
  5. VICODIN [Concomitant]
     Indication: PAIN
     Route: 065
  6. ARAVA [Concomitant]
     Indication: ARTHRALGIA
     Route: 065

REACTIONS (2)
  - Systemic lupus erythematosus rash [Recovered/Resolved]
  - Paraesthesia [Recovered/Resolved]
